FAERS Safety Report 5450041-0 (Version None)
Quarter: 2007Q3

REPORT INFORMATION
  Report Type: 
  Country: None (occurrence: None)
  Receive Date: 20070912
  Receipt Date: 20070906
  Transmission Date: 20080115
  Serious: Yes (Hospitalization, Other)
  Sender: FDA-Public Use
  Company Number: GB-AVENTIS-200715136GDDC

PATIENT
  Age: 80 Year
  Sex: Male

DRUGS (3)
  1. LANTUS [Suspect]
     Route: 058
     Dates: start: 20061101
  2. AUTOPEN INSULIN INJECTION PEN [Suspect]
     Route: 058
  3. NO MENTION OF RELEVANT DISEASE [Concomitant]

REACTIONS (1)
  - CHOLECYSTECTOMY [None]
